FAERS Safety Report 10144040 (Version 3)
Quarter: 2014Q3

REPORT INFORMATION
  Report Type: Report from Study
  Country: CA (occurrence: CA)
  Receive Date: 20140430
  Receipt Date: 20140805
  Transmission Date: 20150326
  Serious: Yes (Hospitalization, Other)
  Sender: FDA-Public Use
  Company Number: CA-ABBVIE-14P-028-1228273-00

PATIENT
  Sex: Female

DRUGS (1)
  1. HUMIRA [Suspect]
     Active Substance: ADALIMUMAB
     Indication: CROHN^S DISEASE
     Route: 058
     Dates: start: 20090310

REACTIONS (7)
  - Gastrointestinal disorder [Not Recovered/Not Resolved]
  - Drug ineffective [Recovered/Resolved with Sequelae]
  - Colitis [Unknown]
  - Large intestinal stenosis [Unknown]
  - Diarrhoea [Not Recovered/Not Resolved]
  - Intestinal obstruction [Unknown]
  - Intestinal mucosal hypertrophy [Unknown]
